FAERS Safety Report 5736795-4 (Version None)
Quarter: 2008Q2

REPORT INFORMATION
  Report Type: 
  Country: None (occurrence: None)
  Receive Date: 20080509
  Receipt Date: 20080505
  Transmission Date: 20081010
  Serious: Yes (Hospitalization, Other)
  Sender: FDA-Public Use
  Company Number: 2008S1004516

PATIENT
  Age: 66 Year
  Sex: Female

DRUGS (1)
  1. PHOSPHOSODA FLAVOR NOT SPECIFIED [Suspect]
     Indication: HYSTERECTOMY
     Dosage: X1; PO
     Route: 048
     Dates: start: 20051130, end: 20051130

REACTIONS (3)
  - ANAEMIA [None]
  - HYPERTENSION [None]
  - RENAL FAILURE CHRONIC [None]
